FAERS Safety Report 16069190 (Version 1)
Quarter: 2019Q1

REPORT INFORMATION
  Report Type: Spontaneous
  Country: US (occurrence: US)
  Receive Date: 20190313
  Receipt Date: 20190313
  Transmission Date: 20190418
  Serious: Yes (Other)
  Sender: FDA-Public Use
  Company Number: US-ALLERGAN-1909702US

PATIENT
  Sex: Female
  Weight: 115 kg

DRUGS (7)
  1. IMODIUM [Concomitant]
     Active Substance: LOPERAMIDE HYDROCHLORIDE
     Indication: COLITIS
     Dosage: 9 DF, QD
     Route: 048
  2. DICYCLOMINE [Concomitant]
     Active Substance: DICYCLOMINE HYDROCHLORIDE
     Indication: GASTROINTESTINAL PAIN
     Dosage: 10 MG, PRN, NOT EVERY DAY
     Route: 048
  3. ESTRING [Suspect]
     Active Substance: ESTRADIOL
     Indication: ATROPHIC VULVOVAGINITIS
  4. ALPRAZOLAM. [Concomitant]
     Active Substance: ALPRAZOLAM
     Indication: SLEEP DISORDER
     Dosage: 1.5 MG, QHS
     Route: 048
  5. TRINTELLIX [Concomitant]
     Active Substance: VORTIOXETINE HYDROBROMIDE
     Indication: DEPRESSION
     Dosage: 5 MG, QHS
     Route: 048
  6. ESTRACE [Suspect]
     Active Substance: ESTRADIOL
     Indication: OVARIAN CYST
     Dosage: UNK
     Route: 065
  7. ESTRING [Suspect]
     Active Substance: ESTRADIOL
     Indication: VULVOVAGINAL PAIN
     Dosage: UNK
     Route: 065

REACTIONS (6)
  - Uterine disorder [Unknown]
  - Vulvovaginal discomfort [Not Recovered/Not Resolved]
  - Off label use [Unknown]
  - Cerebrovascular accident [Unknown]
  - Dyspareunia [Not Recovered/Not Resolved]
  - Vaginal haemorrhage [Unknown]

NARRATIVE: CASE EVENT DATE: 2006
